FAERS Safety Report 6089560-5 (Version None)
Quarter: 2009Q1

REPORT INFORMATION
  Report Type: 
  Country: None (occurrence: None)
  Receive Date: 20090224
  Receipt Date: 20090209
  Transmission Date: 20090719
  Serious: Yes (Death, Hospitalization)
  Sender: FDA-Public Use
  Company Number: FR-GENENTECH-277427

PATIENT
  Age: 21 Year
  Sex: Male

DRUGS (4)
  1. MABTHERA [Suspect]
     Indication: IDIOPATHIC THROMBOCYTOPENIC PURPURA
     Dosage: 700 MG, 1/WEEK
     Route: 042
     Dates: start: 20080919, end: 20081010
  2. IMUREL [Suspect]
     Indication: COLITIS
     Dosage: 125 MG, UNK
     Route: 065
     Dates: start: 20081105
  3. CORTANCYL [Suspect]
     Indication: DRUG USE FOR UNKNOWN INDICATION
     Dosage: 35 MEQ, UNK
     Route: 048
     Dates: start: 20080822, end: 20081105
  4. REMICADE [Concomitant]
     Indication: DRUG USE FOR UNKNOWN INDICATION

REACTIONS (1)
  - SEPTIC SHOCK [None]
